FAERS Safety Report 10086968 (Version 1)
Quarter: 2014Q2

REPORT INFORMATION
  Report Type: Spontaneous
  Country: US (occurrence: US)
  Receive Date: 20140418
  Receipt Date: 20140418
  Transmission Date: 20141212
  Serious: No
  Sender: FDA-Public Use
  Company Number: US-PFIZER INC-2014107986

PATIENT
  Age: 61 Year
  Sex: Male

DRUGS (1)
  1. LYRICA [Suspect]
     Indication: NEUROPATHY PERIPHERAL
     Dosage: 300 MG, 2X/DAY

REACTIONS (9)
  - Drug withdrawal syndrome [Unknown]
  - Agitation [Unknown]
  - Confusional state [Unknown]
  - Diarrhoea [Unknown]
  - Tremor [Unknown]
  - Hyperhidrosis [Unknown]
  - Tachycardia [Unknown]
  - Hypertension [Unknown]
  - Abnormal behaviour [Unknown]
